FAERS Safety Report 6136218-X (Version None)
Quarter: 2009Q1

REPORT INFORMATION
  Report Type: 
  Country: None (occurrence: None)
  Receive Date: 20090330
  Receipt Date: 20090323
  Transmission Date: 20090719
  Serious: Yes (Other)
  Sender: FDA-Public Use
  Company Number: BR-BAYER-200913906LA

PATIENT
  Age: 52 Year
  Sex: Female

DRUGS (4)
  1. BETAFERON [Suspect]
     Indication: MULTIPLE SCLEROSIS
     Route: 058
     Dates: start: 20090227, end: 20090301
  2. BETAFERON [Suspect]
     Route: 058
     Dates: start: 20090301, end: 20090301
  3. BETAFERON [Suspect]
     Route: 058
     Dates: start: 20090321
  4. ARADOIS [Concomitant]
     Indication: HYPERTENSION
     Route: 048
     Dates: start: 20080301

REACTIONS (5)
  - FATIGUE [None]
  - HEADACHE [None]
  - LAZINESS [None]
  - PAIN [None]
  - SOMNOLENCE [None]
